FAERS Safety Report 7675969-2 (Version None)
Quarter: 2011Q3

REPORT INFORMATION
  Report Type: 
  Country: None (occurrence: None)
  Receive Date: 20110811
  Receipt Date: 20110803
  Transmission Date: 20111222
  Serious: No
  Sender: FDA-Public Use
  Company Number: US-BIOGENIDEC-2011BI023586

PATIENT
  Age: 32 Year
  Sex: Female

DRUGS (2)
  1. TYSABRI [Suspect]
     Indication: MULTIPLE SCLEROSIS
     Route: 042
     Dates: start: 20070122, end: 20080721
  2. TYSABRI [Suspect]
     Route: 042
     Dates: start: 20090930, end: 20110623

REACTIONS (3)
  - HYPERSENSITIVITY [None]
  - ANXIETY [None]
  - HYPOAESTHESIA [None]
